FAERS Safety Report 7648873-3 (Version None)
Quarter: 2011Q3

REPORT INFORMATION
  Report Type: 
  Country: None (occurrence: None)
  Receive Date: 20110801
  Receipt Date: 20110725
  Transmission Date: 20111222
  Serious: Yes (Hospitalization)
  Sender: FDA-Public Use
  Company Number: PHHY2011TW66752

PATIENT
  Age: 78 Year
  Sex: Female

DRUGS (1)
  1. WARFARIN SODIUM [Suspect]
     Indication: DEEP VEIN THROMBOSIS

REACTIONS (10)
  - VASCULAR PSEUDOANEURYSM [None]
  - DYSPNOEA [None]
  - CARDIOMEGALY [None]
  - TACHYCARDIA [None]
  - PULMONARY OEDEMA [None]
  - CHEST DISCOMFORT [None]
  - PERICARDIAL HAEMORRHAGE [None]
  - OVERDOSE [None]
  - ASTHENIA [None]
  - PALPITATIONS [None]
